FAERS Safety Report 9119337 (Version 1)
Quarter: 2013Q1

REPORT INFORMATION
  Report Type: Spontaneous
  Country: FR (occurrence: FR)
  Receive Date: 20130207
  Receipt Date: 20130207
  Transmission Date: 20140127
  Serious: Yes (Hospitalization)
  Sender: FDA-Public Use
  Company Number: FR-B.I. PHARMACEUTICALS,INC./RIDGEFIELD-2013-FF-00348FF

PATIENT
  Age: 71 Year
  Sex: Female

DRUGS (9)
  1. TWYNSTA [Suspect]
     Indication: HYPERTENSION
     Dosage: 40MG/5MG
     Route: 048
     Dates: start: 20121209, end: 20121224
  2. TERALITHE [Suspect]
     Indication: BIPOLAR DISORDER
     Dosage: 800 MG
     Route: 048
     Dates: end: 20121224
  3. KARDEGIC [Concomitant]
     Dosage: 160 MG
     Route: 048
  4. DISCOTRINE [Concomitant]
     Dosage: 5MG/24H
     Route: 062
  5. CRESTOR [Concomitant]
     Dosage: 10 MG
     Route: 048
  6. PROZAC [Concomitant]
     Dosage: 40 MG
     Route: 048
  7. LYRICA [Concomitant]
     Dosage: 75 MG
     Route: 048
  8. LAROXYL [Concomitant]
     Dosage: 40NG/ML 10DROPS PER DAY
     Route: 048
  9. XANAX [Concomitant]
     Dosage: 0.75 MG
     Route: 048

REACTIONS (4)
  - Antipsychotic drug level increased [Recovered/Resolved]
  - Diarrhoea [Recovered/Resolved]
  - Disorientation [Recovered/Resolved]
  - Tremor [Recovered/Resolved]
